FAERS Safety Report 16587114 (Version 1)
Quarter: 2019Q3

REPORT INFORMATION
  Report Type: Spontaneous
  Country: US (occurrence: US)
  Receive Date: 20190717
  Receipt Date: 20190717
  Transmission Date: 20191004
  Serious: No
  Sender: FDA-Public Use
  Company Number: US-JNJFOC-20190635565

PATIENT
  Age: 72 Year
  Sex: Male
  Weight: 166 kg

DRUGS (4)
  1. REMICADE [Suspect]
     Active Substance: INFLIXIMAB
     Route: 042
     Dates: start: 20190521
  2. REMICADE [Suspect]
     Active Substance: INFLIXIMAB
     Indication: COLITIS ULCERATIVE
     Dosage: START DATE ALSO REPORTED AS /JUL/2018
     Route: 042
     Dates: start: 2017, end: 20190521
  3. IMURAN [Concomitant]
     Active Substance: AZATHIOPRINE
  4. METOPROLOL. [Concomitant]
     Active Substance: METOPROLOL
     Route: 048

REACTIONS (3)
  - Rash pruritic [Unknown]
  - Body height decreased [Unknown]
  - Drug eruption [Unknown]

NARRATIVE: CASE EVENT DATE: 20190325
